FAERS Safety Report 7829409-0 (Version None)
Quarter: 2011Q4

REPORT INFORMATION
  Report Type: 
  Country: None (occurrence: None)
  Receive Date: 20111020
  Receipt Date: 20111014
  Transmission Date: 20120403
  Serious: Yes (Death)
  Sender: FDA-Public Use
  Company Number: US-BAYER-2011-099222

PATIENT
  Age: 58 Year
  Sex: Male

DRUGS (7)
  1. ASPIRIN [Suspect]
     Dosage: DAILY DOSE 325 MG
     Dates: end: 20111003
  2. TRICOR [Concomitant]
     Dosage: UNK
     Dates: end: 20111003
  3. FISH OIL [Concomitant]
     Dosage: UNK
     Dates: end: 20111003
  4. PLAVIX [Suspect]
     Dosage: DAILY DOSE 75 MG
     Route: 048
     Dates: end: 20111003
  5. ATORVASTATIN [Concomitant]
     Dosage: UNK
     Dates: end: 20111003
  6. DRONEDARONE HCL [Suspect]
     Dosage: 400 MG, BID
     Route: 048
     Dates: end: 20111003
  7. COUMADIN [Suspect]
     Dosage: DAILY DOSE 5 MG
     Dates: end: 20111003

REACTIONS (2)
  - SINUS BRADYCARDIA [None]
  - INTERNATIONAL NORMALISED RATIO ABNORMAL [None]
